FAERS Safety Report 22380178 (Version 6)
Quarter: 2025Q1

REPORT INFORMATION
  Report Type: Spontaneous
  Country: US (occurrence: US)
  Receive Date: 20230529
  Receipt Date: 20250116
  Transmission Date: 20250409
  Serious: Yes (Other)
  Sender: PFIZER
  Company Number: US-PFIZER INC-PV202300095129

PATIENT
  Age: 75 Year
  Sex: Male
  Weight: 70.748 kg

DRUGS (1)
  1. XELJANZ [Suspect]
     Active Substance: TOFACITINIB CITRATE
     Dosage: 5 MG, 2X/DAY

REACTIONS (3)
  - Macular degeneration [Not Recovered/Not Resolved]
  - Product dispensing error [Unknown]
  - Intentional product misuse [Unknown]
